FAERS Safety Report 25620337 (Version 2)
Quarter: 2025Q3

REPORT INFORMATION
  Report Type: Spontaneous
  Country: EU (occurrence: EU)
  Receive Date: 20250730
  Receipt Date: 20250814
  Transmission Date: 20251020
  Serious: Yes (Life-Threatening, Other)
  Sender: CELLTRION
  Company Number: None

PATIENT

DRUGS (3)
  1. INFLIXIMAB [Suspect]
     Active Substance: INFLIXIMAB
     Indication: Crohn^s disease
     Route: 042
     Dates: start: 20250429, end: 20250429
  2. CETIRIZINE HYDROCHLORIDE [Concomitant]
     Active Substance: CETIRIZINE HYDROCHLORIDE
     Indication: Chemotherapy side effect prophylaxis
     Route: 048
     Dates: start: 20250429, end: 20250429
  3. BETAMETHASONE [Concomitant]
     Active Substance: BETAMETHASONE
     Indication: Chemotherapy side effect prophylaxis
     Route: 042
     Dates: start: 20250429, end: 20250429

REACTIONS (6)
  - Loss of consciousness [Recovering/Resolving]
  - Anaphylactic shock [Recovering/Resolving]
  - Seizure [Recovering/Resolving]
  - Incontinence [Recovering/Resolving]
  - Livedo reticularis [Not Recovered/Not Resolved]
  - Dyspnoea [Not Recovered/Not Resolved]

NARRATIVE: CASE EVENT DATE: 20250429
